FAERS Safety Report 7054373-4 (Version None)
Quarter: 2010Q4

REPORT INFORMATION
  Report Type: 
  Country: None (occurrence: None)
  Receive Date: 20101015
  Receipt Date: 20070111
  Transmission Date: 20110411
  Serious: Yes (Death)
  Sender: FDA-Public Use
  Company Number: 2006JP005361

PATIENT
  Age: 71 Year
  Sex: Female
  Weight: 47 kg

DRUGS (15)
  1. FUNGUARD (MICAFUNGIN) INJECTION [Suspect]
     Indication: SYSTEMIC CANDIDA
     Dosage: 150 MG, IV DRIP,  225 MG, IV DRIP, 300 MG, IV DRIP
     Route: 041
     Dates: start: 20060820, end: 20060822
  2. FUNGUARD (MICAFUNGIN) INJECTION [Suspect]
     Indication: SYSTEMIC CANDIDA
     Dosage: 150 MG, IV DRIP,  225 MG, IV DRIP, 300 MG, IV DRIP
     Route: 041
     Dates: start: 20060823, end: 20060823
  3. FUNGUARD (MICAFUNGIN) INJECTION [Suspect]
     Indication: SYSTEMIC CANDIDA
     Dosage: 150 MG, IV DRIP,  225 MG, IV DRIP, 300 MG, IV DRIP
     Route: 041
     Dates: start: 20060829, end: 20060929
  4. ZYVOX [Suspect]
     Dosage: 1200 MG, 225 MG, IV DRIP, 300 MG, IV DRIP
     Route: 041
     Dates: start: 20060828, end: 20060904
  5. DIFLUCAN [Concomitant]
  6. VFEND [Concomitant]
  7. MEROPENEM [Concomitant]
  8. TARGOCID [Concomitant]
  9. CEFTAZIDIME [Concomitant]
  10. COTRIM [Concomitant]
  11. EXACIN (ISEPAMICIN SULFATE) [Concomitant]
  12. HABEKACIN (ARBEKACIN) [Concomitant]
  13. TIENAM (IMIPENEM, CILASTATIN SODIUM) [Concomitant]
  14. NEUTROGIN (LENOGRASTIM) [Concomitant]
  15. IMMUNE GLOBULIN INTRAVENOUS (HUMAN) [Concomitant]

REACTIONS (6)
  - ALANINE AMINOTRANSFERASE INCREASED [None]
  - ASPARTATE AMINOTRANSFERASE INCREASED [None]
  - BLOOD BILIRUBIN INCREASED [None]
  - HEPATIC FUNCTION ABNORMAL [None]
  - RENAL IMPAIRMENT [None]
  - SEPSIS [None]
